FAERS Safety Report 10205439 (Version 1)
Quarter: 2014Q2

REPORT INFORMATION
  Report Type: Spontaneous
  Country: CN (occurrence: CN)
  Receive Date: 20140529
  Receipt Date: 20140529
  Transmission Date: 20141212
  Serious: Yes (Other)
  Sender: FDA-Public Use
  Company Number: PHHY2014CN063613

PATIENT
  Age: 36 Year
  Sex: Male

DRUGS (5)
  1. CISPLATIN [Suspect]
     Dosage: 120 MG, UNK
  2. MITOMYCIN C [Suspect]
     Dosage: 30 MG, UNK
  3. DOCETAXEL [Suspect]
     Dosage: 75 MG/M2, ON DAY 1, EVERY 3 WEEKS
  4. CARBOPLATIN [Suspect]
     Dosage: 5 OT, AUC 5; ON DAY 1, EVERY 3 WEEKS
  5. SODIUM CHLORIDE [Suspect]

REACTIONS (1)
  - Abdominal wall haemorrhage [Recovered/Resolved]
